FAERS Safety Report 9563084 (Version 1)
Quarter: 2013Q3

REPORT INFORMATION
  Report Type: Spontaneous
  Country: US (occurrence: US)
  Receive Date: 20130927
  Receipt Date: 20130927
  Transmission Date: 20140515
  Serious: No
  Sender: FDA-Public Use
  Company Number: US-BRISTOL-MYERS SQUIBB COMPANY-17048992

PATIENT
  Age: 82 Year
  Sex: Female

DRUGS (5)
  1. ONGLYZA TABS 5 MG [Suspect]
  2. GLYBURIDE [Concomitant]
  3. LISINOPRIL [Concomitant]
  4. FENOFIBRATE [Concomitant]
  5. PRAVASTATINE [Concomitant]

REACTIONS (1)
  - Upper respiratory tract infection [Unknown]
